FAERS Safety Report 24728352 (Version 2)
Quarter: 2025Q1

REPORT INFORMATION
  Report Type: Report from Study
  Country: CA (occurrence: CA)
  Receive Date: 20241212
  Receipt Date: 20250103
  Transmission Date: 20250408
  Serious: Yes (Hospitalization)
  Sender: ABBVIE
  Company Number: CA-ABBVIE-6037592

PATIENT
  Age: 39 Year
  Sex: Male

DRUGS (2)
  1. RINVOQ [Suspect]
     Active Substance: UPADACITINIB
     Indication: Ankylosing spondylitis
     Dosage: START DATE: 2024
     Route: 048
     Dates: start: 2024
  2. RINVOQ [Suspect]
     Active Substance: UPADACITINIB
     Indication: Ankylosing spondylitis
     Dosage: LAST ADMIN DATE: 2024
     Route: 048
     Dates: start: 20240517

REACTIONS (6)
  - Incision site abscess [Recovered/Resolved]
  - Perineal swelling [Recovered/Resolved]
  - Perineal disorder [Recovered/Resolved]
  - Perineal pain [Recovered/Resolved]
  - Gastrointestinal motility disorder [Recovered/Resolved]
  - Constipation [Recovered/Resolved]

NARRATIVE: CASE EVENT DATE: 20241101
